FAERS Safety Report 15314691 (Version 1)
Quarter: 2018Q3

REPORT INFORMATION
  Report Type: Spontaneous
  Country: DE (occurrence: DE)
  Receive Date: 20180824
  Receipt Date: 20180824
  Transmission Date: 20181010
  Serious: Yes (Hospitalization, Other)
  Sender: FDA-Public Use
  Company Number: DE-TEVA-2018-DE-944701

PATIENT
  Age: 51 Year
  Sex: Female

DRUGS (7)
  1. ENOXAPARIN 0,4 ML [Concomitant]
     Dosage: .4 ML DAILY;
     Route: 058
  2. SIMVASTATIN 20 MG [Concomitant]
     Active Substance: SIMVASTATIN
     Dosage: 20 MILLIGRAM DAILY;
  3. COPAXONE [Suspect]
     Active Substance: GLATIRAMER ACETATE
     Indication: RELAPSING-REMITTING MULTIPLE SCLEROSIS
     Dosage: ON MONDAY, WEDNESDAY AND SATURDAY
     Route: 058
     Dates: start: 20160906
  4. METOPROLOL 23,75 MG [Concomitant]
     Dosage: 47.5 MILLIGRAM DAILY;
  5. RAMIPRIL 1,25 MG [Concomitant]
     Dosage: 1.25 MILLIGRAM DAILY;
  6. ASPIRIN. [Concomitant]
     Active Substance: ASPIRIN
     Dosage: 100 MILLIGRAM DAILY;
  7. PRASUGREL 10 MG [Concomitant]
     Active Substance: PRASUGREL
     Dosage: 10 MILLIGRAM DAILY;

REACTIONS (1)
  - Cerebellar infarction [Recovered/Resolved]

NARRATIVE: CASE EVENT DATE: 20180430
